FAERS Safety Report 13455776 (Version 2)
Quarter: 2017Q2

REPORT INFORMATION
  Report Type: Report from Study
  Country: IT (occurrence: IT)
  Receive Date: 20170419
  Receipt Date: 20170517
  Transmission Date: 20170830
  Serious: Yes (Hospitalization, Other)
  Sender: FDA-Public Use
  Company Number: IT-ASTELLAS-2017US014299

PATIENT
  Age: 75 Year
  Sex: Male

DRUGS (3)
  1. ENANTONE LP [Concomitant]
     Active Substance: LEUPROLIDE ACETATE
     Indication: PROSTATE CANCER
     Dosage: 11.25 MG, EVERY 3 MONTHS
     Route: 030
     Dates: start: 201311
  2. ENZALUTAMIDE [Suspect]
     Active Substance: ENZALUTAMIDE
     Indication: PROSTATE CANCER
     Route: 048
     Dates: start: 20150811, end: 20170412
  3. AMLODIPINE W/PERINDOPRIL [Concomitant]
     Active Substance: AMLODIPINE BESYLATE\PERINDOPRIL
     Indication: HYPERTENSION
     Dosage: 10/10 MG, ONCE DAILY
     Route: 048
     Dates: start: 20170218, end: 20170426

REACTIONS (1)
  - Acute myocardial infarction [Recovering/Resolving]

NARRATIVE: CASE EVENT DATE: 20170411
